FAERS Safety Report 7739539 (Version 4)
Quarter: 2012Q4

REPORT INFORMATION
  Report Type: 
  Country: JP (occurrence: JP)
  Receive Date: 20101224
  Receipt Date: 20120830
  Transmission Date: 20130627
  Serious: Yes (Other)
  Sender: FDA-Public Use
  Company Number: JP-AMGEN-JPNCT2010011106

PATIENT
  Age: 76 Year
  Sex: Male
  Weight: 60 kg

DRUGS (16)
  1. PANITUMUMAB [Suspect]
     Indication: COLORECTAL CANCER
     Dosage: 6 mg/kg, q2wk
     Route: 041
     Dates: start: 20101007, end: 20101125
  2. OXALIPLATIN [Suspect]
     Indication: COLORECTAL CANCER
     Dosage: 100 mg, q2wk
     Route: 041
     Dates: start: 20100922, end: 20101125
  3. FLUOROURACIL [Suspect]
     Indication: COLORECTAL CANCER
     Dosage: 500 mg, q2wk
     Route: 040
     Dates: start: 20100922, end: 20101125
  4. FLUOROURACIL [Suspect]
     Dosage: 500 mg, q2wk
     Route: 041
     Dates: start: 20100922, end: 20101125
  5. LEUCOVORIN [Suspect]
     Indication: COLORECTAL CANCER
     Dosage: 250 mg, q2wk
     Route: 041
     Dates: start: 20100922, end: 20101125
  6. CORTICOSTEROIDS [Concomitant]
     Indication: PROPHYLAXIS
     Route: 065
  7. HIRUDOID [Concomitant]
     Dosage: UNK UNK, q4h
     Route: 062
     Dates: start: 20101004
  8. OLMETEC [Concomitant]
     Route: 048
  9. HARNAL [Concomitant]
     Route: 048
  10. BIOFERMIN [Concomitant]
     Route: 048
  11. MUCOSTA [Concomitant]
     Route: 048
  12. MAGMITT [Concomitant]
     Route: 048
  13. VOALLA [Concomitant]
     Route: 062
     Dates: start: 20101004
  14. ISODINE GARGLE [Concomitant]
     Route: 049
     Dates: start: 20101012, end: 20101103
  15. DECADRON [Concomitant]
     Indication: PROPHYLAXIS
     Route: 041
     Dates: start: 20100922, end: 20101126
  16. GRANISETRON [Concomitant]
     Indication: PROPHYLAXIS
     Route: 041
     Dates: start: 20101007, end: 20101126

REACTIONS (8)
  - Interstitial lung disease [Recovering/Resolving]
  - Hyperamylasaemia [Recovering/Resolving]
  - Gastrooesophageal reflux disease [Recovered/Resolved]
  - Acne [Recovering/Resolving]
  - Paronychia [Recovering/Resolving]
  - Stomatitis [Recovering/Resolving]
  - Hyperkalaemia [Recovered/Resolved]
  - Dry skin [Recovering/Resolving]
